FAERS Safety Report 5166475-8 (Version None)
Quarter: 2006Q4

REPORT INFORMATION
  Report Type: 
  Country: None (occurrence: None)
  Receive Date: 20061129
  Receipt Date: 20061115
  Transmission Date: 20070319
  Serious: Yes (Hospitalization)
  Sender: FDA-Public Use
  Company Number: T200601324

PATIENT
  Age: 56 Year
  Sex: Male

DRUGS (1)
  1. LIQUID BAROSPERSE (BARIUM SULFATE)SUSPENSION [Suspect]
     Indication: COLON OPERATION
     Dosage: RECTAL
     Route: 054

REACTIONS (6)
  - BLOOD BILIRUBIN INCREASED [None]
  - BURNS FIRST DEGREE [None]
  - COLONIC STENOSIS [None]
  - POLYPECTOMY [None]
  - PROCTALGIA [None]
  - SIGMOIDITIS [None]
